FAERS Safety Report 8052681-1 (Version None)
Quarter: 2012Q1

REPORT INFORMATION
  Report Type: 
  Country: None (occurrence: None)
  Receive Date: 20120118
  Receipt Date: 20120118
  Transmission Date: 20120608
  Serious: Yes (Life-Threatening, Disabling, Other)
  Sender: FDA-Public Use
  Company Number: None

PATIENT
  Age: 42 Year
  Sex: Female
  Weight: 68.038 kg

DRUGS (1)
  1. HUMIRA [Suspect]
     Indication: PSORIASIS
     Dates: start: 20110515, end: 20111225

REACTIONS (5)
  - SYSTEMIC LUPUS ERYTHEMATOSUS [None]
  - LYMPHADENOPATHY [None]
  - DYSPNOEA [None]
  - ARTHRITIS REACTIVE [None]
  - THROAT IRRITATION [None]
